FAERS Safety Report 4893759-0 (Version None)
Quarter: 2006Q1

REPORT INFORMATION
  Report Type: 
  Country: None (occurrence: None)
  Receive Date: 20060127
  Receipt Date: 20060119
  Transmission Date: 20060701
  Serious: Yes (Hospitalization)
  Sender: FDA-Public Use
  Company Number: US-KINGPHARMUSA00001-K200600052

PATIENT
  Age: 84 Year
  Sex: Female

DRUGS (6)
  1. ALTACE [Suspect]
     Indication: BLOOD PRESSURE INCREASED
     Dosage: 2.5 MG, QD
     Route: 048
     Dates: end: 20051227
  2. METFORMIN [Concomitant]
     Indication: DIABETES MELLITUS
     Dosage: 1000 MG, UNK
     Route: 048
  3. SENNA [Concomitant]
     Indication: CONSTIPATION
     Dosage: 2 U, UNK
     Route: 048
  4. CHLORPROMAZINE [Suspect]
     Dosage: 75 MG, QD
     Route: 048
     Dates: end: 20051227
  5. AMLODIPINE [Suspect]
     Indication: BLOOD PRESSURE INCREASED
     Dosage: 10 MG, QD
     Route: 048
     Dates: end: 20051227
  6. PAROXETINE HCL [Concomitant]
     Indication: DEPRESSION
     Dosage: 30 MG, UNK
     Route: 048

REACTIONS (2)
  - FALL [None]
  - ORTHOSTATIC HYPOTENSION [None]
